FAERS Safety Report 17448873 (Version 1)
Quarter: 2020Q1

REPORT INFORMATION
  Report Type: Report from Study
  Country: CN (occurrence: CN)
  Receive Date: 20200224
  Receipt Date: 20200224
  Transmission Date: 20200409
  Serious: Yes (Other)
  Sender: FDA-Public Use
  Company Number: CN-ROCHE-2550374

PATIENT

DRUGS (2)
  1. CAPECITABINE. [Suspect]
     Active Substance: CAPECITABINE
     Indication: GASTROINTESTINAL CARCINOMA
     Dosage: 2500 MG/(M2/ D)
     Route: 048
  2. CISPLATIN. [Suspect]
     Active Substance: CISPLATIN
     Indication: GASTROINTESTINAL CARCINOMA
     Dosage: 60-80 MG/M2?TOTAL DOSE WAS CALCULATED AND DIVIDED INTO 3 DAYS OF CONTINUOUS INTRAVENOUS DRIP AND FUL
     Route: 041

REACTIONS (3)
  - Abdominal discomfort [Unknown]
  - Ageusia [Unknown]
  - Decreased appetite [Unknown]
